FAERS Safety Report 17344812 (Version 2)
Quarter: 2020Q1

REPORT INFORMATION
  Report Type: Spontaneous
  Country: BR (occurrence: BR)
  Receive Date: 20200129
  Receipt Date: 20200320
  Transmission Date: 20200409
  Serious: Yes (Other)
  Sender: FDA-Public Use
  Company Number: BR-SHIRE-BR202002438

PATIENT

DRUGS (1)
  1. RIXUBIS [Suspect]
     Active Substance: COAGULATION FACTOR IX RECOMBINANT HUMAN
     Indication: FACTOR IX DEFICIENCY
     Dosage: 3000 INTERNATIONAL UNIT, 2X A WEEK
     Route: 065
     Dates: start: 201502

REACTIONS (5)
  - Haemorrhage [Unknown]
  - Joint injury [Unknown]
  - Gait disturbance [Unknown]
  - Arthropathy [Unknown]
  - Expired product administered [Unknown]
